FAERS Safety Report 22243288 (Version 1)
Quarter: 2023Q2

REPORT INFORMATION
  Report Type: Spontaneous
  Country: BR (occurrence: BR)
  Receive Date: 20230424
  Receipt Date: 20230424
  Transmission Date: 20230721
  Serious: Yes (Other)
  Sender: FDA-Public Use
  Company Number: BR-SCALL-2023-AMR-039491

PATIENT
  Age: 50 Year
  Sex: Male

DRUGS (3)
  1. DUTASTERIDE [Suspect]
     Active Substance: DUTASTERIDE
     Indication: Hair growth abnormal
     Dosage: 0.5 MG,  QD
     Route: 065
     Dates: start: 2022, end: 2022
  2. MINOXIDIL [Suspect]
     Active Substance: MINOXIDIL
     Route: 065
  3. UNSPECIFIED INGREDIENT [Suspect]
     Active Substance: UNSPECIFIED INGREDIENT
     Route: 065

REACTIONS (6)
  - Erectile dysfunction [Unknown]
  - Erectile dysfunction [Unknown]
  - Loss of libido [Unknown]
  - Sexual dysfunction [Unknown]
  - Semen volume decreased [Unknown]
  - Therapy cessation [Unknown]
